FAERS Safety Report 4988522-6 (Version None)
Quarter: 2006Q2

REPORT INFORMATION
  Report Type: 
  Country: None (occurrence: None)
  Receive Date: 20060426
  Receipt Date: 20060407
  Transmission Date: 20061013
  Serious: Yes (Other)
  Sender: FDA-Public Use
  Company Number: ENT 2006-0053

PATIENT
  Age: 82 Year
  Sex: Male

DRUGS (3)
  1. COMTAN [Suspect]
     Dosage: 1800 MG (600 MG, 3 IN 1 D)  ORAL
     Route: 048
     Dates: start: 20060215
  2. MIRAPEX [Concomitant]
  3. ANTI-PARKINSON AGENTS [Concomitant]

REACTIONS (2)
  - DRUG INEFFECTIVE [None]
  - HALLUCINATION, VISUAL [None]
